FAERS Safety Report 24135120 (Version 1)
Quarter: 2024Q3

REPORT INFORMATION
  Report Type: Spontaneous
  Country: US (occurrence: US)
  Receive Date: 20240725
  Receipt Date: 20240725
  Transmission Date: 20241016
  Serious: No
  Sender: ALEMBIC
  Company Number: US-ALEMBIC PHARMACUETICALS LIMITED-2024SCAL001003

PATIENT

DRUGS (2)
  1. PRAZOSIN HYDROCHLORIDE [Suspect]
     Active Substance: PRAZOSIN HYDROCHLORIDE
     Indication: Post-traumatic stress disorder
     Dosage: 4MG OR 6MG  (2 TO 3 CAPSULES DAILY)
     Route: 065
  2. PRAZOSIN HYDROCHLORIDE [Suspect]
     Active Substance: PRAZOSIN HYDROCHLORIDE
     Indication: Nightmare

REACTIONS (3)
  - Cardiac disorder [Unknown]
  - Suspected product quality issue [Unknown]
  - Tachycardia [None]
